FAERS Safety Report 20912483 (Version 2)
Quarter: 2022Q2

REPORT INFORMATION
  Report Type: Spontaneous
  Country: US (occurrence: US)
  Receive Date: 20220603
  Receipt Date: 20220625
  Transmission Date: 20220721
  Serious: No
  Sender: FDA-Public Use
  Company Number: US-BRISTOL-MYERS SQUIBB COMPANY-2022-051838

PATIENT
  Age: 75 Year
  Sex: Female

DRUGS (2)
  1. POMALYST [Suspect]
     Active Substance: POMALIDOMIDE
     Indication: Plasma cell myeloma
     Dosage: TAKE 1 CAPSULE BY ?MOUTH EVERY DAY ?FOR 21 DAYS ?FOLLOWED BY 7 ?DAY REST PERIOD. ?DO NOT BREAK, ?CHE
     Route: 048
     Dates: start: 20220428
  2. POMALYST [Suspect]
     Active Substance: POMALIDOMIDE
     Dosage: TAKE 1 CAPSULE BY MOUTH EVERY DAY FOR 21DAYS ?FOLLOWED BY 7 DAY REST PERIOD. DO NOT BREAK, ?CHEW, OR
     Route: 048
     Dates: start: 20220428

REACTIONS (10)
  - Nasopharyngitis [Unknown]
  - Decreased appetite [Unknown]
  - Stomatitis [Unknown]
  - Product dose omission issue [Unknown]
  - Nausea [Unknown]
  - Vomiting [Unknown]
  - Asthenia [Unknown]
  - Asthenia [Unknown]
  - Eating disorder [Unknown]
  - Glossodynia [Unknown]

NARRATIVE: CASE EVENT DATE: 20220616
